FAERS Safety Report 8495980-1 (Version None)
Quarter: 2012Q3

REPORT INFORMATION
  Report Type: 
  Country: None (occurrence: None)
  Receive Date: 20120709
  Receipt Date: 20120704
  Transmission Date: 20120928
  Serious: Yes (Hospitalization)
  Sender: FDA-Public Use
  Company Number: JP-GLAXOSMITHKLINE-B0812925A

PATIENT
  Sex: Female

DRUGS (8)
  1. CANDESARTAN CILEXETIL [Concomitant]
     Route: 048
  2. ASVERIN [Concomitant]
     Route: 048
  3. UNIPHYL [Concomitant]
     Route: 048
  4. ALPRAZOLAM [Concomitant]
     Route: 048
  5. VALTREX [Suspect]
     Indication: HERPES ZOSTER
     Dosage: 3000MG PER DAY
     Route: 048
     Dates: start: 20120609, end: 20120612
  6. BUNAZOSIN HYDROCHLORIDE [Concomitant]
     Route: 048
  7. AIROCOOL [Concomitant]
     Route: 048
  8. DOGMATYL [Concomitant]
     Route: 065

REACTIONS (6)
  - POSTRENAL FAILURE [None]
  - ASTHENIA [None]
  - RENAL FAILURE [None]
  - COGNITIVE DISORDER [None]
  - URINARY RETENTION [None]
  - AKINESIA [None]
